FAERS Safety Report 6927668-X (Version None)
Quarter: 2010Q3

REPORT INFORMATION
  Report Type: 
  Country: None (occurrence: None)
  Receive Date: 20100817
  Receipt Date: 20100708
  Transmission Date: 20110219
  Serious: No
  Sender: FDA-Public Use
  Company Number: A0866154A

PATIENT
  Age: 55 Year
  Sex: Male

DRUGS (7)
  1. VOTRIENT [Suspect]
     Indication: PRODUCT USED FOR UNKNOWN INDICATION
     Dosage: 400MG PER DAY
     Route: 048
  2. SYNTHROID [Concomitant]
     Route: 048
  3. AVODART [Concomitant]
     Route: 048
  4. DYAZIDE [Concomitant]
     Route: 048
  5. HYDROCORTISONE [Concomitant]
     Route: 048
  6. JANUVIA [Concomitant]
     Route: 048
  7. TESTOSTERONE CYPIONATE [Concomitant]
     Route: 058

REACTIONS (2)
  - DRUG LABEL CONFUSION [None]
  - DRUG PRESCRIBING ERROR [None]
